FAERS Safety Report 4285497-2 (Version None)
Quarter: 2004Q1

REPORT INFORMATION
  Report Type: 
  Country: None (occurrence: None)
  Receive Date: 20040202
  Receipt Date: 20040119
  Transmission Date: 20041129
  Serious: No
  Sender: FDA-Public Use
  Company Number: 2004GB00144

PATIENT
  Age: 55 Year
  Sex: Female
  Weight: 79 kg

DRUGS (16)
  1. CRESTOR [Suspect]
     Indication: HYPERCHOLESTEROLAEMIA
     Dosage: 40 MG DAILY PO
     Route: 048
     Dates: start: 20031111, end: 20031222
  2. VALSARTAN [Concomitant]
  3. BISOPROLOL FUMARATE [Concomitant]
  4. SIMVASTATIN [Concomitant]
  5. SPIRONOLACTONE [Concomitant]
  6. ISOSORBIDE MONONITRATE [Concomitant]
  7. VENTOLIN [Concomitant]
  8. SERETIDE ^ALLEN + HANBURYS LTD^ [Concomitant]
  9. FUROSEMIDE [Concomitant]
  10. FEXOFENADINE HCL [Concomitant]
  11. CO-PROXAMOL [Concomitant]
  12. METFORMIN HCL [Concomitant]
  13. MONTELUKAST [Concomitant]
  14. COMBIVENT [Concomitant]
  15. GTN [Concomitant]
  16. ASPIRIN [Concomitant]

REACTIONS (4)
  - CHEST DISCOMFORT [None]
  - COUGH [None]
  - HEART RATE INCREASED [None]
  - WHEEZING [None]
